FAERS Safety Report 8357517-7 (Version None)
Quarter: 2012Q2

REPORT INFORMATION
  Report Type: 
  Country: None (occurrence: None)
  Receive Date: 20120514
  Receipt Date: 20120501
  Transmission Date: 20120825
  Serious: Yes (Hospitalization)
  Sender: FDA-Public Use
  Company Number: JP-ACTELION-A-CH2012-63641

PATIENT
  Age: 69 Year
  Sex: Female
  Weight: 54.2 kg

DRUGS (9)
  1. NERISONA [Concomitant]
  2. LASIX [Concomitant]
  3. MAGNESIUM SULFATE [Concomitant]
  4. BERAPROST SODIUM [Concomitant]
     Dosage: UNK
     Dates: start: 20100301
  5. TANATRIL [Concomitant]
  6. CEVIMELINE HYDROCHLORIDE [Concomitant]
  7. WARFARIN SODIUM [Concomitant]
  8. HYALEIN [Concomitant]
  9. TRACLEER [Suspect]
     Indication: PULMONARY ARTERIAL HYPERTENSION
     Dosage: 62.5 MG, BID
     Route: 048
     Dates: start: 20101108, end: 20120405

REACTIONS (8)
  - RIGHT VENTRICULAR FAILURE [None]
  - ALANINE AMINOTRANSFERASE INCREASED [None]
  - HEPATIC CONGESTION [None]
  - BRAIN NATRIURETIC PEPTIDE INCREASED [None]
  - ASPARTATE AMINOTRANSFERASE INCREASED [None]
  - HEPATIC FUNCTION ABNORMAL [None]
  - MALAISE [None]
  - CONDITION AGGRAVATED [None]
